FAERS Safety Report 4289130-5 (Version None)
Quarter: 2004Q1

REPORT INFORMATION
  Report Type: 
  Country: None (occurrence: None)
  Receive Date: 20040210
  Receipt Date: 20040130
  Transmission Date: 20041129
  Serious: Yes (Life-Threatening, Hospitalization, Other)
  Sender: FDA-Public Use
  Company Number: PHRM2004FR00699

PATIENT
  Age: 58 Year
  Sex: Female

DRUGS (3)
  1. VOLTAREN [Suspect]
     Dates: start: 20030801
  2. VOLTAREN [Suspect]
     Dosage: .04 ML, ONCE/SINGLE
     Route: 023
     Dates: start: 20031106, end: 20031106
  3. CLIMODIEN [Concomitant]
     Dosage: 1 DF, QOD
     Route: 048

REACTIONS (10)
  - ANAPHYLACTIC SHOCK [None]
  - ANGIONEUROTIC OEDEMA [None]
  - ATRIAL FIBRILLATION [None]
  - CARDIOGENIC SHOCK [None]
  - DRUG HYPERSENSITIVITY [None]
  - EJECTION FRACTION DECREASED [None]
  - HYPERSENSITIVITY [None]
  - INTERSTITIAL LUNG DISEASE [None]
  - TACHYARRHYTHMIA [None]
  - VENTRICULAR DYSFUNCTION [None]
